FAERS Safety Report 7890201-2 (Version None)
Quarter: 2011Q4

REPORT INFORMATION
  Report Type: 
  Country: None (occurrence: None)
  Receive Date: 20111103
  Receipt Date: 20110727
  Transmission Date: 20120403
  Serious: No
  Sender: FDA-Public Use
  Company Number: US-AMGEN-USASP2011022806

PATIENT
  Sex: Female

DRUGS (3)
  1. ENBREL [Suspect]
  2. ENBREL [Suspect]
     Indication: RHEUMATOID ARTHRITIS
     Dosage: 50 MG, QWK
     Dates: start: 20090501
  3. ENBREL [Suspect]

REACTIONS (3)
  - CYSTITIS [None]
  - URINARY INCONTINENCE [None]
  - UPPER-AIRWAY COUGH SYNDROME [None]
